FAERS Safety Report 22131199 (Version 2)
Quarter: 2023Q1

REPORT INFORMATION
  Report Type: Spontaneous
  Country: US (occurrence: US)
  Receive Date: 20230323
  Receipt Date: 20230327
  Transmission Date: 20230418
  Serious: No
  Sender: FDA-Public Use
  Company Number: US-APIL-2308647US

PATIENT
  Sex: Female

DRUGS (1)
  1. REFRESH RELIEVA [Suspect]
     Active Substance: CARBOXYMETHYLCELLULOSE SODIUM\GLYCERIN
     Indication: Dry eye
     Route: 047

REACTIONS (3)
  - Ocular hyperaemia [Unknown]
  - Reaction to excipient [Not Recovered/Not Resolved]
  - Eye irritation [Recovered/Resolved]
